FAERS Safety Report 21571424 (Version 1)
Quarter: 2022Q4

REPORT INFORMATION
  Report Type: Spontaneous
  Country: US (occurrence: None)
  Receive Date: 20221107
  Receipt Date: 20221107
  Transmission Date: 20230113
  Serious: No
  Sender: FDA-Public Use
  Company Number: None

PATIENT
  Age: 66 Year
  Sex: Female

DRUGS (4)
  1. PROLIA [Suspect]
     Active Substance: DENOSUMAB
     Indication: Senile osteoporosis
     Dosage: OTHER FREQUENCY : EVERY 6 MONTHS;?
     Route: 058
     Dates: start: 20151006
  2. CARBAMAZEPIN CAP 100MG ER [Concomitant]
  3. REBIF INJ 44/0.5 [Concomitant]
  4. TOLTERODINE [Concomitant]
     Active Substance: TOLTERODINE

REACTIONS (2)
  - Surgery [None]
  - Inappropriate schedule of product administration [None]

NARRATIVE: CASE EVENT DATE: 20221103
